FAERS Safety Report 4602161-8 (Version None)
Quarter: 2005Q2

REPORT INFORMATION
  Report Type: 
  Country: None (occurrence: None)
  Receive Date: 20050215
  Receipt Date: 20040827
  Transmission Date: 20051028
  Serious: No
  Sender: FDA-Public Use
  Company Number: MC200400379

PATIENT
  Age: 58 Year
  Sex: Male
  Weight: 70 kg

DRUGS (3)
  1. ANGIOMAX [Suspect]
     Indication: CORONARY ANGIOPLASTY
     Dosage: 0.75 MG/KG, BOLUS, IV BOLUS
     Route: 040
     Dates: start: 20040820, end: 20040820
  2. ANGIOMAX [Suspect]
     Dosage: 1.75 MG/KR, INTRAVENOUS
     Route: 042
     Dates: start: 20040820, end: 20040820
  3. HEPARIN [Concomitant]

REACTIONS (2)
  - COAGULATION TIME ABNORMAL [None]
  - CORONARY ARTERY THROMBOSIS [None]
